FAERS Safety Report 23411151 (Version 1)
Quarter: 2024Q1

REPORT INFORMATION
  Report Type: Spontaneous
  Country: US (occurrence: US)
  Receive Date: 20240117
  Receipt Date: 20240117
  Transmission Date: 20240410
  Serious: No
  Sender: FDA-Public Use
  Company Number: US-FERRINGPH-2022FE06881

PATIENT
  Age: 84 Year
  Sex: Female

DRUGS (1)
  1. CLENPIQ [Suspect]
     Active Substance: ANHYDROUS CITRIC ACID\MAGNESIUM OXIDE\SODIUM PICOSULFATE
     Indication: Bowel preparation
     Dosage: 2 BOTTLES
     Route: 065
     Dates: start: 20221215, end: 20221216

REACTIONS (8)
  - Tremor [Unknown]
  - Throat irritation [Unknown]
  - Chest pain [Unknown]
  - Feeling abnormal [Unknown]
  - Anxiety [Unknown]
  - Product packaging difficult to open [Unknown]
  - Abdominal pain [Unknown]
  - Unevaluable event [Unknown]

NARRATIVE: CASE EVENT DATE: 20221201
